FAERS Safety Report 6019587-0 (Version None)
Quarter: 2008Q4

REPORT INFORMATION
  Report Type: 
  Country: None (occurrence: None)
  Receive Date: 20081224
  Receipt Date: 20081211
  Transmission Date: 20090506
  Serious: Yes (Disabling)
  Sender: FDA-Public Use
  Company Number: DE-GENENTECH-269684

PATIENT
  Sex: Female

DRUGS (3)
  1. BEVACIZUMAB [Suspect]
     Indication: BREAST CANCER
     Dosage: 750 MG, Q21D
     Route: 042
     Dates: start: 20080909
  2. EPIRUBICIN [Suspect]
     Indication: BREAST CANCER
     Dosage: 138.6 MG, Q21D
     Route: 042
     Dates: start: 20080909
  3. CYCLOPHOSPHAMIDE [Suspect]
     Indication: BREAST CANCER
     Dosage: 924 MG, Q21D
     Route: 042
     Dates: start: 20080909

REACTIONS (1)
  - PHLEBITIS [None]
